FAERS Safety Report 25327058 (Version 2)
Quarter: 2025Q2

REPORT INFORMATION
  Report Type: Spontaneous
  Country: ES (occurrence: ES)
  Receive Date: 20250517
  Receipt Date: 20250523
  Transmission Date: 20250716
  Serious: Yes (Hospitalization, Other)
  Sender: CELLTRION
  Company Number: ES-CELLTRION INC.-2023ES000617

PATIENT

DRUGS (6)
  1. ADALIMUMAB [Suspect]
     Active Substance: ADALIMUMAB
     Indication: Rheumatoid arthritis
     Route: 058
  2. ADALIMUMAB [Suspect]
     Active Substance: ADALIMUMAB
     Indication: Rheumatoid arthritis
     Route: 065
  3. CIMZIA [Suspect]
     Active Substance: CERTOLIZUMAB PEGOL
     Indication: Rheumatoid arthritis
     Route: 065
  4. CIMZIA [Suspect]
     Active Substance: CERTOLIZUMAB PEGOL
     Indication: Rheumatoid arthritis
  5. CERTOLIZUMAB PEGOL [Suspect]
     Active Substance: CERTOLIZUMAB PEGOL
     Indication: Rheumatoid arthritis
     Route: 065
  6. CERTOLIZUMAB PEGOL [Suspect]
     Active Substance: CERTOLIZUMAB PEGOL
     Indication: Rheumatoid arthritis

REACTIONS (5)
  - Ulcerative keratitis [Recovered/Resolved]
  - Rheumatoid arthritis [Unknown]
  - Corneal perforation [Unknown]
  - Alopecia [Unknown]
  - Drug ineffective [Unknown]

NARRATIVE: CASE EVENT DATE: 20191201
